FAERS Safety Report 5566954-5 (Version None)
Quarter: 2007Q4

REPORT INFORMATION
  Report Type: 
  Country: None (occurrence: None)
  Receive Date: 20071219
  Receipt Date: 20070605
  Transmission Date: 20080405
  Serious: No
  Sender: FDA-Public Use
  Company Number: US-BRISTOL-MYERS SQUIBB COMPANY-13804133

PATIENT
  Sex: Male

DRUGS (4)
  1. PRAVACHOL [Suspect]
     Route: 048
  2. POTASSIUM CHLORIDE [Concomitant]
  3. LOTREL [Concomitant]
  4. HYDROCHLOROTHIAZIDE [Concomitant]

REACTIONS (2)
  - FALL [None]
  - MYALGIA [None]
